FAERS Safety Report 9164939 (Version 1)
Quarter: 2013Q1

REPORT INFORMATION
  Report Type: Spontaneous
  Country: US (occurrence: None)
  Receive Date: 20130313
  Receipt Date: 20130313
  Transmission Date: 20140127
  Serious: Yes (Hospitalization)
  Sender: FDA-Public Use
  Company Number: None

PATIENT
  Age: 67 Year
  Sex: Male
  Weight: 77.8 kg

DRUGS (1)
  1. KETOROLAC TROMETHAMINE [Suspect]
     Indication: PAIN
     Dosage: 60 MG ONCE IM
     Route: 030
     Dates: start: 20121105, end: 20121105

REACTIONS (6)
  - Anaphylactic reaction [None]
  - Unresponsive to stimuli [None]
  - Salivary hypersecretion [None]
  - Rash [None]
  - Hypotension [None]
  - Loss of consciousness [None]
